FAERS Safety Report 6202698-4 (Version None)
Quarter: 2009Q2

REPORT INFORMATION
  Report Type: 
  Country: None (occurrence: None)
  Receive Date: 20090526
  Receipt Date: 20090515
  Transmission Date: 20091009
  Serious: Yes (Hospitalization)
  Sender: FDA-Public Use
  Company Number: PHHY2009JP04225

PATIENT
  Age: 39 Year
  Sex: Male

DRUGS (6)
  1. CYCLOSPORINE [Suspect]
     Indication: PSORIASIS
     Dosage: 3 MG/KG/DAY
     Dates: start: 20030101
  2. CYCLOSPORINE [Suspect]
     Dosage: 175 MG
     Route: 048
     Dates: end: 20080401
  3. NEORAL [Suspect]
     Indication: PSORIASIS
     Dosage: 175 MG/DAY
     Route: 048
     Dates: end: 20080401
  4. TIGASON [Concomitant]
     Dosage: 0.5 MG/KG/DAY
     Dates: start: 20080401
  5. URSO 250 [Concomitant]
     Dosage: UNK
     Route: 048
  6. LIVACT [Concomitant]
     Dosage: UNK
     Route: 048

REACTIONS (4)
  - ACANTHOSIS [None]
  - HYPERKERATOSIS [None]
  - RASH [None]
  - SKIN LESION [None]
